FAERS Safety Report 6383488-9 (Version None)
Quarter: 2009Q4

REPORT INFORMATION
  Report Type: 
  Country: None (occurrence: None)
  Receive Date: 20091001
  Receipt Date: 20090922
  Transmission Date: 20100525
  Serious: Yes (Disabling, Other)
  Sender: FDA-Public Use
  Company Number: US-ROCHE-652177

PATIENT
  Sex: Female
  Weight: 20.5 kg

DRUGS (1)
  1. CELLCEPT [Suspect]
     Indication: NEPHROTIC SYNDROME
     Route: 048
     Dates: start: 20090201

REACTIONS (5)
  - CAVERNOUS SINUS THROMBOSIS [None]
  - GENE MUTATION [None]
  - INTRACRANIAL PRESSURE INCREASED [None]
  - PAPILLOEDEMA [None]
  - TRANSVERSE SINUS THROMBOSIS [None]
